FAERS Safety Report 25245815 (Version 4)
Quarter: 2025Q4

REPORT INFORMATION
  Report Type: Report from Study
  Country: US (occurrence: US)
  Receive Date: 20250428
  Receipt Date: 20251031
  Transmission Date: 20260118
  Serious: No
  Sender: TRAVERE THERAPEUTICS
  Company Number: US-TRAVERE-2025TVT00304

PATIENT
  Age: 52 Year
  Sex: Female

DRUGS (10)
  1. FILSPARI [Suspect]
     Active Substance: SPARSENTAN
     Indication: IgA nephropathy
     Route: 048
     Dates: start: 202502
  2. TARPEYO [Concomitant]
     Active Substance: BUDESONIDE
  3. JARDIANCE [Concomitant]
     Active Substance: EMPAGLIFLOZIN
  4. ALBUTEROL SULFATE [Concomitant]
     Active Substance: ALBUTEROL SULFATE
  5. LOSARTAN [Concomitant]
     Active Substance: LOSARTAN
  6. ARNUITY ELLIPTA [Concomitant]
     Active Substance: FLUTICASONE FUROATE
  7. Clotrimazole-Betamethasone/0.05% Cream [Concomitant]
  8. FLUTICASONE PROPIONATE [Concomitant]
     Active Substance: FLUTICASONE PROPIONATE
  9. MONTELUKAST SODIUM [Concomitant]
     Active Substance: MONTELUKAST SODIUM
  10. TERCONAZOLE [Concomitant]
     Active Substance: TERCONAZOLE

REACTIONS (8)
  - Mean cell haemoglobin concentration decreased [None]
  - Platelet count increased [Unknown]
  - Globulins increased [Unknown]
  - Albumin globulin ratio decreased [Unknown]
  - Peripheral swelling [None]
  - Joint swelling [None]
  - Adverse drug reaction [Recovered/Resolved]
  - Contraindicated product administered [Unknown]

NARRATIVE: CASE EVENT DATE: 20250623
